FAERS Safety Report 16771371 (Version 1)
Quarter: 2019Q3

REPORT INFORMATION
  Report Type: Report from Study
  Country: AU (occurrence: AU)
  Receive Date: 20190904
  Receipt Date: 20190904
  Transmission Date: 20191005
  Serious: Yes (Hospitalization, Other)
  Sender: FDA-Public Use
  Company Number: AU-BRISTOL-MYERS SQUIBB COMPANY-BMS-2019-085633

PATIENT
  Age: 56 Year
  Sex: Male

DRUGS (2)
  1. IPILIMUMAB [Suspect]
     Active Substance: IPILIMUMAB
     Indication: MALIGNANT MELANOMA
     Dosage: 98 MILLIGRAM, Q3WK
     Route: 042
     Dates: start: 20190521, end: 20190611
  2. NIVOLUMAB [Suspect]
     Active Substance: NIVOLUMAB
     Indication: MALIGNANT MELANOMA
     Dosage: 294 MILLIGRAM, Q3WK
     Route: 042
     Dates: start: 20190521, end: 20190611

REACTIONS (3)
  - Large intestine perforation [Recovered/Resolved with Sequelae]
  - Constipation [Recovered/Resolved with Sequelae]
  - Myelitis transverse [Recovered/Resolved with Sequelae]

NARRATIVE: CASE EVENT DATE: 20190813
